FAERS Safety Report 4949093-3 (Version None)
Quarter: 2006Q1

REPORT INFORMATION
  Report Type: 
  Country: None (occurrence: None)
  Receive Date: 20060321
  Receipt Date: 20051031
  Transmission Date: 20060701
  Serious: Yes (Hospitalization, Disabling)
  Sender: FDA-Public Use
  Company Number: US-MERCK-0511USA00099

PATIENT
  Age: 58 Year
  Sex: Female
  Weight: 73 kg

DRUGS (16)
  1. VIOXX [Suspect]
     Indication: PAIN IN EXTREMITY
     Route: 048
     Dates: start: 19990101, end: 20011120
  2. VIOXX [Suspect]
     Route: 048
     Dates: start: 19990101, end: 20011120
  3. VIOXX [Suspect]
     Indication: VERTEBRAL INJURY
     Route: 048
     Dates: start: 19990101, end: 20011120
  4. VIOXX [Suspect]
     Route: 048
     Dates: start: 19990101, end: 20011120
  5. ACTOS [Concomitant]
     Indication: DIABETES MELLITUS NON-INSULIN-DEPENDENT
     Route: 065
  6. ATIVAN [Concomitant]
     Indication: ANXIETY
     Route: 065
  7. ENTEX (OLD FORMULA) [Concomitant]
     Indication: SINUS CONGESTION
     Route: 065
  8. GLUCOPHAGE [Concomitant]
     Indication: DIABETES MELLITUS NON-INSULIN-DEPENDENT
     Route: 065
  9. GLUCOTROL [Concomitant]
     Indication: DIABETES MELLITUS NON-INSULIN-DEPENDENT
     Route: 065
  10. LIPITOR [Concomitant]
     Indication: BLOOD CHOLESTEROL INCREASED
     Route: 065
  11. NEURONTIN [Concomitant]
     Route: 065
  12. NORVASC [Concomitant]
     Indication: HYPERTENSION
     Route: 065
  13. PEPCID [Concomitant]
     Indication: ULCER
     Route: 065
  14. POTASSIUM (UNSPECIFIED) [Concomitant]
     Indication: HYPOKALAEMIA
     Route: 065
  15. VITAMIN E [Concomitant]
     Indication: CORONARY ARTERY DISEASE
     Route: 065
  16. DICLOFENAC [Concomitant]
     Indication: PAIN
     Route: 065

REACTIONS (24)
  - ABDOMINAL PAIN UPPER [None]
  - ANGINA PECTORIS [None]
  - ARTERIAL BRUIT [None]
  - BACK INJURY [None]
  - CARDIAC FAILURE CONGESTIVE [None]
  - CARDIOMEGALY [None]
  - CARDIOMYOPATHY [None]
  - CHEST PAIN [None]
  - CORONARY ARTERY DISEASE [None]
  - COUGH [None]
  - DEHYDRATION [None]
  - GASTRIC ULCER [None]
  - MAMMOGRAM ABNORMAL [None]
  - NAUSEA [None]
  - NON-CARDIAC CHEST PAIN [None]
  - PNEUMONIA [None]
  - REFRACTORY ANAEMIA [None]
  - RENAL FAILURE CHRONIC [None]
  - SILENT MYOCARDIAL INFARCTION [None]
  - THERAPEUTIC AGENT TOXICITY [None]
  - UPPER RESPIRATORY TRACT CONGESTION [None]
  - VENTRICULAR DYSFUNCTION [None]
  - VERTIGO [None]
  - VOMITING [None]
